FAERS Safety Report 8247020-7 (Version None)
Quarter: 2012Q1

REPORT INFORMATION
  Report Type: 
  Country: None (occurrence: None)
  Receive Date: 20120330
  Receipt Date: 20120330
  Transmission Date: 20120608
  Serious: Yes (Hospitalization)
  Sender: FDA-Public Use
  Company Number: None

PATIENT
  Sex: Female
  Weight: 70.9 kg

DRUGS (1)
  1. FONDAPARINUX SODIUM [Suspect]
     Indication: DEEP VEIN THROMBOSIS
     Dosage: 7.5MG
     Route: 058
     Dates: start: 20111220, end: 20120303

REACTIONS (4)
  - HAEMATURIA [None]
  - PLATELET COUNT DECREASED [None]
  - CONTUSION [None]
  - HEPARIN-INDUCED THROMBOCYTOPENIA TEST POSITIVE [None]
